FAERS Safety Report 25317545 (Version 1)
Quarter: 2025Q2

REPORT INFORMATION
  Report Type: Spontaneous
  Country: ES (occurrence: ES)
  Receive Date: 20250515
  Receipt Date: 20250515
  Transmission Date: 20250717
  Serious: Yes (Other)
  Sender: ALKEM
  Company Number: ES-ALKEM LABORATORIES LIMITED-ES-ALKEM-2024-11742

PATIENT
  Age: 57 Year
  Sex: Female

DRUGS (5)
  1. AZATHIOPRINE [Suspect]
     Active Substance: AZATHIOPRINE
     Indication: Colitis microscopic
     Dosage: 100 MILLIGRAM, QD
     Route: 065
  2. AZATHIOPRINE [Suspect]
     Active Substance: AZATHIOPRINE
     Dosage: 150 MILLIGRAM, QD
     Route: 065
  3. AMOXICILLIN\CLAVULANATE POTASSIUM [Suspect]
     Active Substance: AMOXICILLIN\CLAVULANATE POTASSIUM
     Indication: Sialoadenitis
     Route: 065
  4. BUDESONIDE [Concomitant]
     Active Substance: BUDESONIDE
     Indication: Colitis microscopic
     Dosage: 9 MILLIGRAM, QD
     Route: 065
  5. DULOXETINE [Concomitant]
     Active Substance: DULOXETINE
     Indication: Fibromyalgia
     Route: 065

REACTIONS (2)
  - Sialoadenitis [Recovered/Resolved]
  - Therapy partial responder [Unknown]
